FAERS Safety Report 10013694 (Version 1)
Quarter: 2014Q1

REPORT INFORMATION
  Report Type: Spontaneous
  Country: US (occurrence: US)
  Receive Date: 20140316
  Receipt Date: 20140316
  Transmission Date: 20141002
  Serious: Yes (Hospitalization)
  Sender: FDA-Public Use
  Company Number: US-ASTRAZENECA-2014SE16825

PATIENT
  Age: 42 Year
  Sex: Male

DRUGS (1)
  1. BRILINTA [Suspect]
     Indication: STENT PLACEMENT
     Route: 048
     Dates: start: 201403

REACTIONS (4)
  - Electrocardiogram ST segment elevation [Unknown]
  - Troponin increased [Unknown]
  - Vomiting [Unknown]
  - Drug dose omission [Unknown]
